FAERS Safety Report 9548588 (Version 2)
Quarter: 2013Q4

REPORT INFORMATION
  Report Type: Report from Study
  Country: KR (occurrence: KR)
  Receive Date: 20130924
  Receipt Date: 20131015
  Transmission Date: 20140711
  Serious: Yes (Other)
  Sender: FDA-Public Use
  Company Number: KR-ASTRAZENECA-2013SE69585

PATIENT
  Sex: 0

DRUGS (2)
  1. OMEPRAZOLE [Suspect]
     Route: 048
  2. CLOPIDOGREL [Interacting]

REACTIONS (2)
  - Drug interaction [Unknown]
  - Myocardial infarction [Unknown]
